FAERS Safety Report 18917023 (Version 5)
Quarter: 2021Q2

REPORT INFORMATION
  Report Type: Report from Study
  Country: IL (occurrence: IL)
  Receive Date: 20210219
  Receipt Date: 20210528
  Transmission Date: 20210717
  Serious: Yes (Death, Hospitalization, Other)
  Sender: FDA-Public Use
  Company Number: IL-SHIRE-IL201850477AA

PATIENT
  Age: 73 Year
  Sex: Male

DRUGS (28)
  1. VELAGLUCERASE ALFA [Suspect]
     Active Substance: VELAGLUCERASE ALFA
     Dosage: 3 DOSAGE FORM (6 VIALS/MONTH), 1X/2WKS
     Route: 042
     Dates: start: 20091215
  2. VELAGLUCERASE ALFA [Suspect]
     Active Substance: VELAGLUCERASE ALFA
     Dosage: 3 DOSAGE FORM (6 VIALS/MONTH), 1X/2WKS
     Route: 042
     Dates: start: 20091215
  3. VELAGLUCERASE ALFA [Suspect]
     Active Substance: VELAGLUCERASE ALFA
     Dosage: 3 DOSAGE FORM (6 VIALS/MONTH), 1X/2WKS
     Route: 042
     Dates: start: 20091215
  4. VELAGLUCERASE ALFA [Suspect]
     Active Substance: VELAGLUCERASE ALFA
     Dosage: 3 DOSAGE FORM (6 VIALS/MONTH), 1X/2WKS
     Route: 042
     Dates: start: 20091215
  5. VELAGLUCERASE ALFA [Suspect]
     Active Substance: VELAGLUCERASE ALFA
     Dosage: 3 DOSAGE FORM(6 VIALS/MONTH), 1X/2WKS
     Route: 042
     Dates: start: 20091215
  6. VELAGLUCERASE ALFA [Suspect]
     Active Substance: VELAGLUCERASE ALFA
     Dosage: 1200 INTERNATIONAL UNIT, Q2WEEKS
     Route: 042
     Dates: start: 20091215
  7. REPAGLINIDE. [Concomitant]
     Active Substance: REPAGLINIDE
     Indication: PRODUCT USED FOR UNKNOWN INDICATION
     Dosage: UNK
  8. VELAGLUCERASE ALFA [Suspect]
     Active Substance: VELAGLUCERASE ALFA
     Dosage: 3 DOSAGE FORM (3 Q2WKS, 6 VIALS/MO.), 1X/2WKS
     Route: 042
     Dates: start: 20091215
  9. BONDORMIN [Concomitant]
     Active Substance: BROTIZOLAM
     Indication: PRODUCT USED FOR UNKNOWN INDICATION
     Route: 065
  10. SERETIDE [Concomitant]
     Active Substance: FLUTICASONE PROPIONATE\SALMETEROL XINAFOATE
     Indication: PRODUCT USED FOR UNKNOWN INDICATION
     Dosage: UNK
  11. VELAGLUCERASE ALFA [Suspect]
     Active Substance: VELAGLUCERASE ALFA
     Indication: GAUCHER^S DISEASE
     Dosage: 3 DOSAGE FORM (6 VIALS/MONTH), 1X/2WKS
     Route: 042
     Dates: start: 20091215
  12. PREDNISONE. [Concomitant]
     Active Substance: PREDNISONE
     Indication: PRODUCT USED FOR UNKNOWN INDICATION
     Dosage: UNK
  13. VELAGLUCERASE ALFA [Suspect]
     Active Substance: VELAGLUCERASE ALFA
     Dosage: 3 DOSAGE FORM (3 Q2WKS, 6 VIALS/MO.), 1X/2WKS
     Route: 042
  14. SIMVASTATIN. [Concomitant]
     Active Substance: SIMVASTATIN
     Indication: PRODUCT USED FOR UNKNOWN INDICATION
  15. PLAVIX [Concomitant]
     Active Substance: CLOPIDOGREL BISULFATE
     Indication: PRODUCT USED FOR UNKNOWN INDICATION
     Dosage: 75 MILLIGRAM, 1X/DAY:QD
     Route: 048
  16. POLYDINE [Concomitant]
     Indication: PRODUCT USED FOR UNKNOWN INDICATION
  17. VELAGLUCERASE ALFA [Suspect]
     Active Substance: VELAGLUCERASE ALFA
     Dosage: 3 DOSAGE FORM (6 VIALS/MONTH), 1X/2WKS
     Route: 042
     Dates: start: 20091215
  18. VELAGLUCERASE ALFA [Suspect]
     Active Substance: VELAGLUCERASE ALFA
     Dosage: 3 DOSAGE FORM (3 Q2WKS, 6 VIALS/MO.), 1X/2WKS
     Route: 042
     Dates: start: 20091215
  19. SLOW K [Concomitant]
     Active Substance: POTASSIUM CHLORIDE
     Indication: PRODUCT USED FOR UNKNOWN INDICATION
     Route: 065
  20. EBIXA [Concomitant]
     Active Substance: MEMANTINE HYDROCHLORIDE
     Indication: PRODUCT USED FOR UNKNOWN INDICATION
  21. MONOCORD [Concomitant]
     Active Substance: ISOSORBIDE MONONITRATE
     Indication: PRODUCT USED FOR UNKNOWN INDICATION
  22. FOLIC ACID. [Concomitant]
     Active Substance: FOLIC ACID
     Indication: PRODUCT USED FOR UNKNOWN INDICATION
     Dosage: 5 MILLIGRAM, 1X/DAY:QD
     Route: 048
  23. VELAGLUCERASE ALFA [Suspect]
     Active Substance: VELAGLUCERASE ALFA
     Dosage: 3 DOSAGE FORM (6 VIALS/MONTH), 1X/2WKS
     Route: 042
     Dates: start: 20091215
  24. CARDILOC [Concomitant]
     Active Substance: BISOPROLOL FUMARATE
     Indication: PRODUCT USED FOR UNKNOWN INDICATION
     Dosage: 5 MILLIGRAM, 2X/DAY:BID
     Route: 048
  25. SOLVEX [CARBOCISTEINE] [Concomitant]
     Indication: PRODUCT USED FOR UNKNOWN INDICATION
  26. VELAGLUCERASE ALFA [Suspect]
     Active Substance: VELAGLUCERASE ALFA
     Dosage: 3 DOSAGE FORM (6 VIALS/MONTH), 1X/2WKS
     Route: 042
     Dates: start: 20091215
  27. CEREZYME [Concomitant]
     Active Substance: IMIGLUCERASE
     Indication: PRODUCT USED FOR UNKNOWN INDICATION
     Route: 065
  28. EXELON PATCH [Concomitant]
     Active Substance: RIVASTIGMINE
     Indication: PRODUCT USED FOR UNKNOWN INDICATION

REACTIONS (27)
  - Renal impairment [Fatal]
  - Cardiac failure congestive [Unknown]
  - Upper respiratory tract infection [Not Recovered/Not Resolved]
  - Cognitive disorder [Unknown]
  - Pyrexia [Not Recovered/Not Resolved]
  - Bacterial sepsis [Unknown]
  - Localised infection [Not Recovered/Not Resolved]
  - Chronic obstructive pulmonary disease [Recovering/Resolving]
  - Pneumonia [Not Recovered/Not Resolved]
  - Blood pressure decreased [Recovering/Resolving]
  - Sputum discoloured [Unknown]
  - Gait disturbance [Unknown]
  - Loss of consciousness [Recovering/Resolving]
  - Vasospasm [Unknown]
  - Necrosis [Unknown]
  - Hypersomnia [Unknown]
  - Dyspnoea [Unknown]
  - Bronchial obstruction [Unknown]
  - Renal failure [Recovering/Resolving]
  - Sleep-related eating disorder [Unknown]
  - Hepatic enzyme abnormal [Recovering/Resolving]
  - Neuropathy peripheral [Unknown]
  - Illness [Not Recovered/Not Resolved]
  - Suspected COVID-19 [Not Recovered/Not Resolved]
  - Malaise [Not Recovered/Not Resolved]
  - Cough [Recovering/Resolving]
  - Asthenia [Not Recovered/Not Resolved]

NARRATIVE: CASE EVENT DATE: 20190804
